FAERS Safety Report 17429016 (Version 1)
Quarter: 2020Q1

REPORT INFORMATION
  Report Type: Spontaneous
  Country: FR (occurrence: FR)
  Receive Date: 20200218
  Receipt Date: 20200218
  Transmission Date: 20200409
  Serious: Yes (Other)
  Sender: FDA-Public Use
  Company Number: FR-GLAXOSMITHKLINE-FR2020024546

PATIENT
  Age: 27 Year
  Sex: Female
  Weight: 45 kg

DRUGS (5)
  1. LAMICTAL [Suspect]
     Active Substance: LAMOTRIGINE
     Indication: EPILEPSY
     Dosage: 100 MG, QD
     Route: 048
  2. VIMPAT [Suspect]
     Active Substance: LACOSAMIDE
     Indication: MEDICATION ERROR
     Dosage: IN TOTAL
     Route: 048
     Dates: start: 20200120, end: 20200120
  3. URBANYL [Suspect]
     Active Substance: CLOBAZAM
     Indication: MEDICATION ERROR
     Dosage: IN TOTAL
     Route: 048
     Dates: start: 20200120, end: 20200120
  4. DEPAKINE [Suspect]
     Active Substance: VALPROATE SODIUM
     Indication: EPILEPSY
     Dosage: 1500 MG, QD
     Route: 048
  5. FYCOMPA [Suspect]
     Active Substance: PERAMPANEL
     Indication: MEDICATION ERROR
     Dosage: IN TOTAL
     Route: 048
     Dates: start: 20200120, end: 20200120

REACTIONS (3)
  - Depressed level of consciousness [Recovered/Resolved]
  - Somnolence [Not Recovered/Not Resolved]
  - Wrong schedule [Recovered/Resolved]

NARRATIVE: CASE EVENT DATE: 20200120
